FAERS Safety Report 4327787-0 (Version None)
Quarter: 2004Q1

REPORT INFORMATION
  Report Type: 
  Country: None (occurrence: None)
  Receive Date: 20040325
  Receipt Date: 20040311
  Transmission Date: 20041129
  Serious: Yes (Hospitalization)
  Sender: FDA-Public Use
  Company Number: 2004017366

PATIENT
  Age: 45 Year

DRUGS (1)
  1. TROZOCINA (AZITHROMYCIN) [Suspect]
     Indication: OTITIS EXTERNA
     Dosage: 500 MG (DAILY), ORAL
     Route: 048
     Dates: start: 20040304, end: 20040306

REACTIONS (4)
  - ERYTHEMA [None]
  - HYPOTENSION [None]
  - OCULAR HYPERAEMIA [None]
  - SYNCOPE [None]
